FAERS Safety Report 17192071 (Version 1)
Quarter: 2019Q4

REPORT INFORMATION
  Report Type: Report from Study
  Country: DE (occurrence: DE)
  Receive Date: 20191223
  Receipt Date: 20191223
  Transmission Date: 20200122
  Serious: Yes (Congenital Anomaly)
  Sender: FDA-Public Use
  Company Number: DE-TEVA-2019-DE-1156771

PATIENT
  Sex: Female

DRUGS (5)
  1. PARACETAMOL [Suspect]
     Active Substance: ACETAMINOPHEN
     Indication: INFLAMMATORY BOWEL DISEASE
     Dosage: AT GESTATIONAL WEEK 26+3
     Route: 064
  2. BUDESONIDE. [Suspect]
     Active Substance: BUDESONIDE
     Dosage: DURING THE SECOND AND THIRD TRIMESTERS
     Route: 064
  3. SALBUTAMOL [Suspect]
     Active Substance: ALBUTEROL
     Dosage: DURING THE SECOND AND THIRD TRIMESTERS
     Route: 064
  4. FORMOTEROL [Suspect]
     Active Substance: FORMOTEROL
     Dosage: DURING THE SECOND AND THIRD TRIMESTERS
     Route: 064
  5. MESALAZINE [Suspect]
     Active Substance: MESALAMINE
     Dosage: DURING THE FIRST TRIMESTER
     Route: 064

REACTIONS (2)
  - Foetal exposure during pregnancy [Unknown]
  - Patent ductus arteriosus [Recovered/Resolved]
